FAERS Safety Report 7360933-3 (Version None)
Quarter: 2011Q1

REPORT INFORMATION
  Report Type: 
  Country: None (occurrence: None)
  Receive Date: 20110318
  Receipt Date: 20110316
  Transmission Date: 20110831
  Serious: Yes (Death, Life-Threatening, Hospitalization, Other)
  Sender: FDA-Public Use
  Company Number: JP-ELI_LILLY_AND_COMPANY-JP201011002076

PATIENT
  Sex: Male
  Weight: 42.4 kg

DRUGS (18)
  1. ZOMETA [Concomitant]
     Indication: NON-SMALL CELL LUNG CANCER STAGE IV
     Dosage: 4 MG, OTHER
     Route: 042
     Dates: start: 20101021, end: 20101021
  2. METHYCOBAL [Concomitant]
     Indication: PROPHYLAXIS
     Dosage: 1.5 MG, UNK
     Route: 048
     Dates: start: 20101021, end: 20101103
  3. PANVITAN [Concomitant]
     Dosage: 1 G, DAILY (1/D)
     Route: 048
     Dates: start: 20101015
  4. KYTRIL [Concomitant]
     Indication: PROPHYLAXIS
     Dosage: 3 MG, UNK
     Route: 042
     Dates: start: 20101021, end: 20101021
  5. ALIMTA [Suspect]
     Indication: NON-SMALL CELL LUNG CANCER STAGE IV
     Dosage: 500 MG/M2, OTHER
     Route: 042
     Dates: start: 20101021, end: 20101021
  6. MOBIC [Concomitant]
     Indication: ANALGESIC THERAPY
     Dosage: 10 MG, UNK
     Route: 048
     Dates: start: 20101021, end: 20101103
  7. MERISLON [Concomitant]
     Indication: MENIERE'S DISEASE
     Dosage: 18 MG, UNK
     Route: 048
     Dates: start: 20101021, end: 20101103
  8. CANDESARTAN CILEXETIL [Concomitant]
     Indication: HYPERTENSION
     Dosage: 4 MG, UNK
     Route: 048
     Dates: start: 20101021, end: 20101103
  9. ADETPHOS [Concomitant]
     Indication: MENIERE'S DISEASE
     Dosage: 3 G, UNK
     Route: 048
     Dates: start: 20101021, end: 20101103
  10. TAKEPRON [Concomitant]
     Indication: GASTROINTESTINAL DISORDER
     Dosage: 15 MG, UNK
     Route: 048
     Dates: start: 20101021
  11. MEROPEN [Concomitant]
     Dates: start: 20101028
  12. LIPITOR [Concomitant]
     Indication: HYPERLIPIDAEMIA
     Dosage: 5 MG, UNK
     Route: 048
     Dates: start: 20101021, end: 20101103
  13. LOXONIN [Concomitant]
     Indication: ANALGESIC THERAPY
     Dosage: UNK, AS NEEDED
     Route: 048
     Dates: start: 20101021
  14. ENSURE                             /06184901/ [Concomitant]
     Indication: NUTRITIONAL SUPPORT
     Dates: start: 20101021
  15. DECADRON [Concomitant]
     Indication: PROPHYLAXIS
     Dosage: 16 MG, UNK
     Route: 042
     Dates: start: 20101021, end: 20101021
  16. PRIMPERAN TAB [Concomitant]
     Indication: DECREASED APPETITE
     Dosage: 10 MG, UNK
     Route: 042
     Dates: start: 20101021, end: 20101021
  17. HYDROCHLOROTHIAZIDE [Concomitant]
     Indication: HYPERTENSION
     Dosage: 6.25 MG, UNK
     Route: 048
     Dates: start: 20101021, end: 20101103
  18. LANIRAPID [Concomitant]
     Indication: HYPERTENSION
     Dosage: 0.1 MG, UNK
     Route: 048
     Dates: start: 20101021, end: 20101103

REACTIONS (10)
  - DISEASE PROGRESSION [None]
  - DISSEMINATED INTRAVASCULAR COAGULATION [None]
  - PYREXIA [None]
  - RENAL FAILURE [None]
  - DECREASED APPETITE [None]
  - COGNITIVE DISORDER [None]
  - HAEMORRHAGIC DIATHESIS [None]
  - PANCYTOPENIA [None]
  - BLOOD PRESSURE DECREASED [None]
  - CANCER PAIN [None]
